FAERS Safety Report 18302458 (Version 6)
Quarter: 2022Q4

REPORT INFORMATION
  Report Type: Report from Study
  Country: US (occurrence: US)
  Receive Date: 20200923
  Receipt Date: 20221122
  Transmission Date: 20230113
  Serious: Yes (Other)
  Sender: FDA-Public Use
  Company Number: US-SHIRE-US202030819

PATIENT
  Age: 20 Year
  Sex: Male

DRUGS (4)
  1. ADVATE [Suspect]
     Active Substance: ANTIHEMOPHILIC FACTOR, HUMAN RECOMBINANT
     Indication: Product used for unknown indication
     Dosage: 3000 INTERNATIONAL UNIT
     Route: 042
  2. ADVATE [Suspect]
     Active Substance: ANTIHEMOPHILIC FACTOR, HUMAN RECOMBINANT
     Indication: Product used for unknown indication
     Dosage: 3000 INTERNATIONAL UNIT
     Route: 042
  3. ADVATE [Suspect]
     Active Substance: ANTIHEMOPHILIC FACTOR, HUMAN RECOMBINANT
     Indication: Product used for unknown indication
     Dosage: 3000 INTERNATIONAL UNIT
     Route: 042
  4. AMICAR [Concomitant]
     Active Substance: AMINOCAPROIC ACID
     Indication: Epistaxis
     Dosage: UNK
     Route: 065

REACTIONS (7)
  - Spontaneous haemorrhage [Unknown]
  - Epistaxis [Unknown]
  - Haemorrhage [Unknown]
  - Cyst [Unknown]
  - Peripheral swelling [Unknown]
  - Limb injury [Unknown]
  - Extra dose administered [Unknown]

NARRATIVE: CASE EVENT DATE: 20200801
